FAERS Safety Report 4642814-9 (Version None)
Quarter: 2005Q2

REPORT INFORMATION
  Report Type: 
  Country: None (occurrence: None)
  Receive Date: 20050420
  Receipt Date: 20050413
  Transmission Date: 20051028
  Serious: Yes (Hospitalization)
  Sender: FDA-Public Use
  Company Number: 2005BI006607

PATIENT
  Age: 46 Year
  Sex: Female

DRUGS (1)
  1. NATALIZUMAB (NATALIZUMAB) [Suspect]
     Indication: RHEUMATOID ARTHRITIS
     Dosage: 300 MG;QW; IV
     Route: 042
     Dates: start: 20050222

REACTIONS (6)
  - ABSCESS LIMB [None]
  - CULTURE POSITIVE [None]
  - ESCHERICHIA INFECTION [None]
  - ESCHERICHIA SEPSIS [None]
  - STAPHYLOCOCCAL ABSCESS [None]
  - STREPTOCOCCAL INFECTION [None]
